FAERS Safety Report 16201692 (Version 1)
Quarter: 2019Q2

REPORT INFORMATION
  Report Type: Spontaneous
  Country: US (occurrence: US)
  Receive Date: 20190415
  Receipt Date: 20190415
  Transmission Date: 20190711
  Serious: Yes (Disabling)
  Sender: FDA-Public Use
  Company Number: None

PATIENT
  Age: 52 Year
  Sex: Female
  Weight: 67.5 kg

DRUGS (2)
  1. ATROPINE SULFATE OPHTHALMIC SOLUTION  1% [Suspect]
     Active Substance: ATROPINE SULFATE
     Indication: PUPIL DILATION PROCEDURE
     Dates: start: 20180712, end: 20180822
  2. VITAMINS AND SUPPLEMENTS (UNSPECIFIED) [Concomitant]
     Active Substance: MINERALS\VITAMINS

REACTIONS (1)
  - Visual impairment [None]

NARRATIVE: CASE EVENT DATE: 20180712
